FAERS Safety Report 7939683-8 (Version None)
Quarter: 2011Q4

REPORT INFORMATION
  Report Type: 
  Country: None (occurrence: None)
  Receive Date: 20111125
  Receipt Date: 20111116
  Transmission Date: 20120403
  Serious: Yes (Hospitalization)
  Sender: FDA-Public Use
  Company Number: PHEH2011US008949

PATIENT
  Sex: Female

DRUGS (5)
  1. KEPPRA [Concomitant]
     Dosage: UNK UKN, UNK
     Route: 048
  2. ATIVAN [Concomitant]
     Dosage: UNK UKN, UNK
  3. AMITRIPTYLINE HCL [Concomitant]
     Dosage: UNK UKN, UNK
  4. GILENYA [Suspect]
     Indication: MULTIPLE SCLEROSIS
     Dosage: 0.5 MG, QD
     Route: 048
     Dates: start: 20111102
  5. LEXAPRO [Concomitant]
     Dosage: UNK UKN, UNK

REACTIONS (9)
  - LOSS OF CONSCIOUSNESS [None]
  - UNRESPONSIVE TO STIMULI [None]
  - AMNESIA [None]
  - FATIGUE [None]
  - RESPIRATORY ARREST [None]
  - LETHARGY [None]
  - HYPERTENSION [None]
  - PETIT MAL EPILEPSY [None]
  - STARING [None]
